FAERS Safety Report 4429396-1 (Version None)
Quarter: 2004Q3

REPORT INFORMATION
  Report Type: 
  Country: None (occurrence: None)
  Receive Date: 20040817
  Receipt Date: 20040817
  Transmission Date: 20050211
  Serious: Yes (Life-Threatening, Hospitalization)
  Sender: FDA-Public Use
  Company Number: None

PATIENT
  Sex: Female
  Weight: 45 kg

DRUGS (4)
  1. BEVACIZUMAB [Suspect]
     Indication: COLON CANCER METASTATIC
     Dosage: 225 MG IV
     Route: 042
     Dates: start: 20040617
  2. BEVACIZUMAB [Suspect]
     Indication: COLON CANCER METASTATIC
     Dosage: 225 MG IV
     Route: 042
     Dates: start: 20040701
  3. LEUCOVORIN [Concomitant]
  4. FLUOROURACIL [Concomitant]

REACTIONS (2)
  - EYE DISORDER [None]
  - VITH NERVE PARALYSIS [None]
